FAERS Safety Report 5222232-5 (Version None)
Quarter: 2007Q1

REPORT INFORMATION
  Report Type: 
  Country: None (occurrence: None)
  Receive Date: 20070129
  Receipt Date: 20061017
  Transmission Date: 20070707
  Serious: No
  Sender: FDA-Public Use
  Company Number: US-GLAXOSMITHKLINE-A0624085A

PATIENT
  Age: 47 Year
  Sex: Female

DRUGS (2)
  1. BUPROPION HYDROCHLORIDE [Suspect]
     Indication: DEPRESSION
     Dosage: 150MG TWICE PER DAY
     Route: 048
     Dates: start: 20061001
  2. ONE A DAY [Concomitant]

REACTIONS (6)
  - CRYING [None]
  - DIZZINESS [None]
  - FEAR [None]
  - HYPOAESTHESIA ORAL [None]
  - LIP SWELLING [None]
  - PRURITUS GENERALISED [None]
